FAERS Safety Report 8610451-7 (Version None)
Quarter: 2012Q3

REPORT INFORMATION
  Report Type: 
  Country: None (occurrence: None)
  Receive Date: 20120822
  Receipt Date: 20120815
  Transmission Date: 20120928
  Serious: No
  Sender: FDA-Public Use
  Company Number: US-PFIZER INC-2012201055

PATIENT
  Age: 42 Year
  Sex: Female
  Weight: 79.365 kg

DRUGS (11)
  1. ZOLOFT [Suspect]
     Indication: ANXIETY
     Dosage: 100 MG, DAILY IN THE MORNING
     Route: 048
  2. ZOLOFT [Suspect]
     Indication: OBSESSIVE-COMPULSIVE DISORDER
  3. LYRICA [Suspect]
     Indication: FIBROMYALGIA
     Dosage: 150 MG, 2X/DAY
     Route: 048
  4. DOXEPIN [Concomitant]
     Indication: SLEEP DISORDER
     Dosage: 150 MG, DAILY AT NIGHT
  5. CLONAZEPAM [Concomitant]
     Dosage: 1 MG, DAILY
  6. ZOLOFT [Suspect]
     Indication: FEELING ABNORMAL
     Dosage: 200 MG, DAILY IN THE MORNING
     Route: 048
  7. IBUPROFEN [Suspect]
     Indication: FIBROMYALGIA
     Dosage: 800 MG, UNK
  8. VICODIN [Suspect]
     Indication: FIBROMYALGIA
     Dosage: UNK
  9. CLONAZEPAM [Concomitant]
     Indication: PANIC ATTACK
     Dosage: 2 MG, DAILY
     Dates: start: 19940101
  10. ZOLOFT [Suspect]
     Indication: RESTLESSNESS
  11. TYLENOL W/ CODEINE NO. 3 [Suspect]
     Indication: FIBROMYALGIA
     Dosage: UNK

REACTIONS (6)
  - ABDOMINAL DISCOMFORT [None]
  - DYSPEPSIA [None]
  - SWELLING [None]
  - DRUG INEFFECTIVE [None]
  - INCREASED APPETITE [None]
  - WEIGHT INCREASED [None]
